FAERS Safety Report 19402967 (Version 2)
Quarter: 2021Q2

REPORT INFORMATION
  Report Type: Spontaneous
  Country: US (occurrence: US)
  Receive Date: 20210610
  Receipt Date: 20210621
  Transmission Date: 20210717
  Serious: Yes (Hospitalization)
  Sender: FDA-Public Use
  Company Number: US-TEVA-2021-US-1920129

PATIENT
  Age: 66 Year
  Sex: Female

DRUGS (4)
  1. CALCIUM ACETATE. [Suspect]
     Active Substance: CALCIUM ACETATE
     Indication: MINERAL SUPPLEMENTATION
     Route: 065
  2. FOSRENOL [Suspect]
     Active Substance: LANTHANUM CARBONATE
     Indication: CALCIPHYLAXIS
     Dosage: 2 TABLETS WITH MEAL
     Route: 065
  3. PARICALCITOL. [Suspect]
     Active Substance: PARICALCITOL
     Indication: PROPHYLAXIS
     Route: 042
  4. WARFARIN [Suspect]
     Active Substance: WARFARIN
     Indication: ATRIAL FIBRILLATION
     Route: 065

REACTIONS (5)
  - Necrosis [Unknown]
  - Drug ineffective [Unknown]
  - Aortic valve sclerosis [Unknown]
  - Calciphylaxis [Not Recovered/Not Resolved]
  - Depression [Unknown]
